FAERS Safety Report 10765168 (Version 2)
Quarter: 2015Q1

REPORT INFORMATION
  Report Type: Spontaneous
  Country: JP (occurrence: JP)
  Receive Date: 20150205
  Receipt Date: 20150227
  Transmission Date: 20150721
  Serious: Yes (Other)
  Sender: FDA-Public Use
  Company Number: JP-ASTRAZENECA-2015SE10697

PATIENT
  Age: 51 Year
  Sex: Female
  Weight: 60 kg

DRUGS (4)
  1. FASLODEX [Suspect]
     Active Substance: FULVESTRANT
     Indication: BREAST CANCER RECURRENT
     Route: 030
     Dates: start: 20140424, end: 20141211
  2. XELODA [Concomitant]
     Active Substance: CAPECITABINE
     Indication: BREAST CANCER RECURRENT
     Route: 048
     Dates: start: 20140626, end: 20141113
  3. TS-1 [Concomitant]
     Active Substance: GIMERACIL\OTERACIL\TEGAFUR
     Indication: BREAST CANCER RECURRENT
     Route: 048
     Dates: start: 20141113, end: 20141218
  4. TEGAFUR_URACIL [Concomitant]
     Indication: BREAST CANCER RECURRENT
     Route: 048
     Dates: start: 20140227, end: 20140626

REACTIONS (3)
  - Injection site extravasation [Unknown]
  - Administration site abscess [Recovering/Resolving]
  - Cellulitis [Recovered/Resolved]

NARRATIVE: CASE EVENT DATE: 20141215
